FAERS Safety Report 6381483-7 (Version None)
Quarter: 2009Q3

REPORT INFORMATION
  Report Type: 
  Country: None (occurrence: None)
  Receive Date: 20090924
  Receipt Date: 20090916
  Transmission Date: 20100115
  Serious: Yes (Hospitalization)
  Sender: FDA-Public Use
  Company Number: 2009SP011710

PATIENT
  Age: 37 Year
  Sex: Male
  Weight: 105.6881 kg

DRUGS (2)
  1. PEG-INTRON [Suspect]
     Indication: HEPATITIS C
     Dosage: QW; SC
     Route: 058
     Dates: start: 20081001
  2. RIBAVIRIN [Suspect]
     Indication: HEPATITIS C
     Dosage: 1200 MG; QD; PO
     Route: 048
     Dates: start: 20081001

REACTIONS (21)
  - ANXIETY [None]
  - APPENDICITIS [None]
  - ARTHRALGIA [None]
  - BACK PAIN [None]
  - DEAFNESS [None]
  - DEPRESSION [None]
  - DRY SKIN [None]
  - HAEMOGLOBIN DECREASED [None]
  - INSOMNIA [None]
  - LEUKOPENIA [None]
  - LYMPHOCYTE COUNT DECREASED [None]
  - MYALGIA [None]
  - NEUTROPHIL COUNT DECREASED [None]
  - OROPHARYNGEAL PAIN [None]
  - PRURITUS [None]
  - RED BLOOD CELL COUNT DECREASED [None]
  - RESTLESS LEGS SYNDROME [None]
  - SUBCUTANEOUS ABSCESS [None]
  - TREMOR [None]
  - URINARY TRACT INFECTION [None]
  - WEIGHT DECREASED [None]
